FAERS Safety Report 8413035-9 (Version None)
Quarter: 2012Q2

REPORT INFORMATION
  Report Type: 
  Country: None (occurrence: None)
  Receive Date: 20120605
  Receipt Date: 20120529
  Transmission Date: 20120825
  Serious: No
  Sender: FDA-Public Use
  Company Number: US-AMGEN-USASP2012034102

PATIENT
  Age: 51 Year
  Sex: Female

DRUGS (1)
  1. ENBREL [Suspect]
     Indication: RHEUMATOID ARTHRITIS
     Dosage: 50 MG, QWK
     Dates: start: 20120515

REACTIONS (11)
  - FRUSTRATION [None]
  - ANXIETY [None]
  - ERYTHEMA [None]
  - NASOPHARYNGITIS [None]
  - SINUS DISORDER [None]
  - INJECTION SITE PRURITUS [None]
  - RESTLESSNESS [None]
  - PHOTOPHOBIA [None]
  - INJECTION SITE ERYTHEMA [None]
  - INJECTION SITE PAIN [None]
  - MOOD SWINGS [None]
